FAERS Safety Report 25537044 (Version 2)
Quarter: 2025Q3

REPORT INFORMATION
  Report Type: Spontaneous
  Country: US (occurrence: US)
  Receive Date: 20250710
  Receipt Date: 20250728
  Transmission Date: 20251021
  Serious: Yes (Hospitalization, Other)
  Sender: GLAXOSMITHKLINE
  Company Number: US-GSK-US2025AMR083248

PATIENT
  Age: 68 Year
  Sex: Female
  Weight: 109.4 kg

DRUGS (4)
  1. JEMPERLI [Suspect]
     Active Substance: DOSTARLIMAB-GXLY
     Indication: Fallopian tube cancer metastatic
  2. JEMPERLI [Suspect]
     Active Substance: DOSTARLIMAB-GXLY
     Indication: Ovarian cancer metastatic
  3. PACLITAXEL [Suspect]
     Active Substance: PACLITAXEL
     Indication: Fallopian tube cancer metastatic
     Dosage: UNK 175 MG/M2
  4. PACLITAXEL [Suspect]
     Active Substance: PACLITAXEL
     Indication: Ovarian cancer metastatic

REACTIONS (2)
  - Cardiac arrest [Recovered/Resolved]
  - Hypersensitivity [Recovered/Resolved]

NARRATIVE: CASE EVENT DATE: 20250625
